FAERS Safety Report 8080571-7 (Version None)
Quarter: 2012Q1

REPORT INFORMATION
  Report Type: 
  Country: None (occurrence: None)
  Receive Date: 20120130
  Receipt Date: 20120119
  Transmission Date: 20120608
  Serious: Yes (Hospitalization)
  Sender: FDA-Public Use
  Company Number: FR-JNJFOC-20120107894

PATIENT
  Sex: Female
  Weight: 60 kg

DRUGS (3)
  1. REMICADE [Suspect]
     Indication: COLITIS ULCERATIVE
     Route: 042
     Dates: start: 20110121
  2. METHOTREXATE [Suspect]
     Indication: COLITIS ULCERATIVE
     Route: 058
     Dates: start: 20110105
  3. METHOTREXATE [Suspect]
     Dosage: TOOK X4
     Route: 058
     Dates: start: 20111111, end: 20111111

REACTIONS (2)
  - SUICIDE ATTEMPT [None]
  - INTENTIONAL OVERDOSE [None]
